FAERS Safety Report 21543534 (Version 1)
Quarter: 2022Q4

REPORT INFORMATION
  Report Type: Report from Study
  Country: PR (occurrence: PR)
  Receive Date: 20221102
  Receipt Date: 20221102
  Transmission Date: 20230113
  Serious: No
  Sender: FDA-Public Use
  Company Number: PR-ABBVIE-4149423

PATIENT
  Age: 71 Year
  Sex: Female

DRUGS (7)
  1. HUMIRA [Suspect]
     Active Substance: ADALIMUMAB
     Indication: Ankylosing spondylitis
     Dosage: STRENGTH: 40 MG
     Route: 058
     Dates: start: 2019, end: 202103
  2. NEURONTIN [Concomitant]
     Active Substance: GABAPENTIN
     Indication: Diabetes mellitus
     Route: 048
  3. NEURONTIN [Concomitant]
     Active Substance: GABAPENTIN
     Indication: Diabetes mellitus
     Dosage: START DATE TEXT: OVER 5 YEARS AGO
     Route: 048
  4. Sitagliptin / Metformin (Janumet) [Concomitant]
     Indication: Diabetes mellitus
     Dosage: 50/500MG
     Route: 048
  5. Sitagliptin / Metformin (Janumet) [Concomitant]
     Indication: Diabetes mellitus
     Dosage: 50/500MG?START DATE: OVER 5 YEARS AGO
     Route: 048
  6. SINGULAIR [Concomitant]
     Active Substance: MONTELUKAST SODIUM
     Indication: Asthma
     Route: 048
  7. SINGULAIR [Concomitant]
     Active Substance: MONTELUKAST SODIUM
     Indication: Asthma
     Dosage: START DATE: OVER 5 YEARS AGO
     Route: 048

REACTIONS (1)
  - Pain [Recovering/Resolving]

NARRATIVE: CASE EVENT DATE: 20220901
